FAERS Safety Report 11087082 (Version 2)
Quarter: 2015Q3

REPORT INFORMATION
  Report Type: Spontaneous
  Country: JP (occurrence: JP)
  Receive Date: 20150504
  Receipt Date: 20150701
  Transmission Date: 20151125
  Serious: Yes (Death, Life-Threatening)
  Sender: FDA-Public Use
  Company Number: JP-TEVA-558396ISR

PATIENT
  Age: 82 Year
  Sex: Female
  Weight: 40 kg

DRUGS (8)
  1. E-FEN BUCCAL [Suspect]
     Active Substance: FENTANYL CITRATE
     Indication: BREAKTHROUGH PAIN
     Dosage: DAILY DOSE: 100-300 MCG
     Route: 002
     Dates: start: 20141028, end: 20141030
  2. PRIMPERAN [Concomitant]
     Active Substance: METOCLOPRAMIDE HYDROCHLORIDE
     Indication: ADVERSE REACTION
     Dosage: 10 MILLIGRAM DAILY;
     Route: 042
     Dates: end: 20141030
  3. FENTOS [Concomitant]
     Active Substance: FENTANYL
     Indication: CANCER PAIN
     Dosage: 3 MILLIGRAM DAILY;
     Route: 062
     Dates: start: 20141028, end: 20141028
  4. OXINORM [Concomitant]
     Active Substance: OXYCODONE HYDROCHLORIDE
  5. FENTOS [Concomitant]
     Active Substance: FENTANYL
     Dosage: 4 MILLIGRAM DAILY;
     Route: 062
     Dates: start: 20141029, end: 20141031
  6. ROPION [Concomitant]
     Active Substance: FLURBIPROFEN AXETIL
     Indication: PYREXIA
     Dosage: 50 MILLIGRAM DAILY;
     Route: 042
     Dates: start: 20141027, end: 20141030
  7. METILON [Concomitant]
     Active Substance: METAMIZOLE SODIUM
     Indication: PYREXIA
     Route: 030
     Dates: start: 20141030, end: 20141030
  8. CEFOTIAM [Concomitant]
     Active Substance: CEFOTIAM
     Indication: PYREXIA
     Dosage: 2 GRAM DAILY;
     Route: 042
     Dates: start: 20141027, end: 20141030

REACTIONS (5)
  - Breast cancer [Fatal]
  - Seizure [Not Recovered/Not Resolved]
  - Somnolence [Not Recovered/Not Resolved]
  - Altered state of consciousness [Not Recovered/Not Resolved]
  - Respiratory depression [Not Recovered/Not Resolved]

NARRATIVE: CASE EVENT DATE: 20141030
